FAERS Safety Report 8597498-4 (Version None)
Quarter: 2012Q3

REPORT INFORMATION
  Report Type: 
  Country: None (occurrence: None)
  Receive Date: 20120802
  Receipt Date: 20120721
  Transmission Date: 20120928
  Serious: Yes (Other)
  Sender: FDA-Public Use
  Company Number: AUR-APU-2010-02890

PATIENT
  Age: 64 Year
  Sex: Male

DRUGS (4)
  1. CEFUROXIME AXETIL [Suspect]
     Indication: PRODUCT USED FOR UNKNOWN INDICATION
     Dosage: 1000 MG (500 MG,2 IN 1 D),ORAL
     Route: 048
     Dates: end: 20101114
  2. VERAPAMIL [Concomitant]
  3. AMOXICILLIN [Concomitant]
  4. PRAVASTATIN [Concomitant]

REACTIONS (5)
  - PRODUCT QUALITY ISSUE [None]
  - FOREIGN BODY ASPIRATION [None]
  - TABLET PHYSICAL ISSUE [None]
  - COUGH [None]
  - DYSPHAGIA [None]
